FAERS Safety Report 8314904 (Version 8)
Quarter: 2013Q4

REPORT INFORMATION
  Report Type: Spontaneous
  Country: US (occurrence: US)
  Receive Date: 20111229
  Receipt Date: 20131001
  Transmission Date: 20140711
  Serious: Yes (Other)
  Sender: FDA-Public Use
  Company Number: US-JNJFOC-20111104015

PATIENT
  Sex: Female

DRUGS (13)
  1. TOPAMAX [Suspect]
     Indication: MIGRAINE
     Route: 048
  2. BENADRYL [Suspect]
     Indication: ANTIALLERGIC THERAPY
     Route: 065
  3. IBUPROFEN [Suspect]
     Indication: PRODUCT USED FOR UNKNOWN INDICATION
     Route: 065
  4. COMPAZINE [Suspect]
     Indication: NAUSEA
     Route: 065
  5. CLOBETASOL [Suspect]
     Indication: STEROID THERAPY
     Route: 061
  6. ALBUTEROL [Concomitant]
     Indication: ASTHMA
     Route: 065
  7. CYCLOBENZAPRINE [Concomitant]
     Indication: HEADACHE
     Route: 065
  8. COMBIVENT [Concomitant]
     Indication: ASTHMA
     Route: 065
  9. COMBIVENT [Concomitant]
     Indication: RESPIRATORY TRACT INFECTION
     Route: 065
  10. COMBIVENT [Concomitant]
     Indication: ANTASTHMATIC DRUG LEVEL
     Route: 065
  11. AMOXICILLIN [Concomitant]
     Indication: RESPIRATORY TRACT INFECTION
     Route: 048
  12. KETEK [Concomitant]
     Indication: RESPIRATORY TRACT INFECTION
     Route: 048
  13. EFFEXOR XR [Concomitant]
     Indication: DEPRESSION
     Route: 065

REACTIONS (5)
  - Postpartum depression [Unknown]
  - Exposure during pregnancy [Recovered/Resolved]
  - Anxiety [Recovering/Resolving]
  - Stress [Recovering/Resolving]
  - Feeling guilty [Unknown]
